FAERS Safety Report 8208082-6 (Version None)
Quarter: 2012Q1

REPORT INFORMATION
  Report Type: 
  Country: None (occurrence: None)
  Receive Date: 20120314
  Receipt Date: 20120306
  Transmission Date: 20120608
  Serious: Yes (Other)
  Sender: FDA-Public Use
  Company Number: PHHY2010JP76456

PATIENT
  Age: 74 Year
  Sex: Male

DRUGS (3)
  1. INCADRONIC ACID [Concomitant]
     Dosage: UNK
  2. AREDIA [Suspect]
     Indication: MULTIPLE MYELOMA
     Dosage: UNK
     Route: 041
  3. ZOMETA [Suspect]
     Indication: METASTASES TO BONE
     Dosage: UNK
     Route: 041

REACTIONS (1)
  - OSTEONECROSIS OF JAW [None]
